FAERS Safety Report 7714181 (Version 3)
Quarter: 2013Q2

REPORT INFORMATION
  Report Type: Spontaneous
  Country: US (occurrence: US)
  Receive Date: 20101216
  Receipt Date: 20130513
  Transmission Date: 20140414
  Serious: Yes (Hospitalization, Other)
  Sender: FDA-Public Use
  Company Number: US-ROCHE-724547

PATIENT
  Age: 18 Year
  Sex: Male
  Weight: 59 kg

DRUGS (3)
  1. ACCUTANE [Suspect]
     Indication: ACNE
     Dosage: OTHER INDICATION: PSORIASIS
     Route: 065
     Dates: start: 1995, end: 1996
  2. ACCUTANE [Suspect]
     Route: 065
     Dates: start: 1999, end: 2000
  3. KENALOG [Concomitant]
     Indication: PSORIASIS

REACTIONS (7)
  - Crohn^s disease [Unknown]
  - Small intestinal obstruction [Unknown]
  - Ileal stenosis [Unknown]
  - Intestinal obstruction [Unknown]
  - Inflammatory bowel disease [Unknown]
  - Irritable bowel syndrome [Unknown]
  - Acne [Unknown]
